FAERS Safety Report 9000225 (Version 2)
Quarter: 2013Q1

REPORT INFORMATION
  Report Type: Report from Study
  Country: DE (occurrence: DE)
  Receive Date: 20130102
  Receipt Date: 20130207
  Transmission Date: 20140127
  Serious: Yes (Death, Hospitalization)
  Sender: FDA-Public Use
  Company Number: DE-ROCHE-1175056

PATIENT
  Age: 40 Year
  Sex: Female
  Weight: 59 kg

DRUGS (14)
  1. METHOXY POLYETHYLENE GLYCOL-EPOETIN BETA [Suspect]
     Indication: NEPHROGENIC ANAEMIA
     Route: 042
     Dates: start: 20110201
  2. METHOXY POLYETHYLENE GLYCOL-EPOETIN BETA [Suspect]
     Route: 042
     Dates: start: 20100921
  3. LEVEMIR [Concomitant]
  4. CARENAL [Concomitant]
     Route: 065
     Dates: start: 20111111
  5. FUROSEMID ^DAK^ [Concomitant]
     Route: 065
     Dates: start: 20111111
  6. UNIZINK [Concomitant]
     Route: 065
     Dates: start: 20080101
  7. RENAGEL [Concomitant]
     Route: 065
     Dates: start: 20111111
  8. BISOPROLOL [Concomitant]
     Route: 065
     Dates: start: 20120714
  9. MCP [Concomitant]
     Route: 065
     Dates: start: 20110920
  10. AMLODIPIN [Concomitant]
     Route: 065
     Dates: start: 20111111
  11. RAMIPRIL [Concomitant]
     Route: 065
     Dates: start: 20120529
  12. ONE ALPHA [Concomitant]
     Route: 065
     Dates: start: 20120626
  13. LANTUS [Concomitant]
     Route: 058
  14. FERRLECIT [Concomitant]
     Route: 042

REACTIONS (2)
  - Acute myocardial infarction [Fatal]
  - Arteriosclerosis [Fatal]
